FAERS Safety Report 5354476-6 (Version None)
Quarter: 2007Q2

REPORT INFORMATION
  Report Type: 
  Country: None (occurrence: None)
  Receive Date: 20070612
  Receipt Date: 20070601
  Transmission Date: 20071010
  Serious: Yes (Hospitalization)
  Sender: FDA-Public Use
  Company Number: FR-SANOFI-SYNTHELABO-F01200700578

PATIENT
  Sex: Male

DRUGS (8)
  1. LEXOMIL [Concomitant]
  2. IMIPENEM [Concomitant]
     Indication: HYPERTENSION
  3. GAVISCON [Concomitant]
  4. ZESTORETIC [Concomitant]
  5. BEVACIZUMAB [Suspect]
     Route: 042
     Dates: start: 20070406, end: 20070406
  6. LEUCOVORIN CALCIUM [Suspect]
     Route: 042
     Dates: start: 20070406, end: 20070407
  7. FLUOROURACIL [Suspect]
     Dosage: 400MG/M2 IV BOLUS AND 600MG/M2 CONTINUOUS INFUSION
     Route: 042
     Dates: start: 20070406, end: 20070407
  8. OXALIPLATIN [Suspect]
     Indication: COLON CANCER
     Route: 042
     Dates: start: 20070406, end: 20070406

REACTIONS (1)
  - THROMBOPHLEBITIS [None]
